FAERS Safety Report 13351364 (Version 1)
Quarter: 2017Q1

REPORT INFORMATION
  Report Type: Spontaneous
  Country: NL (occurrence: NL)
  Receive Date: 20170320
  Receipt Date: 20170320
  Transmission Date: 20170429
  Serious: Yes (Death, Hospitalization, Other)
  Sender: FDA-Public Use
  Company Number: PHHY2017NL041256

PATIENT
  Age: 27 Year
  Sex: Female

DRUGS (1)
  1. PAZOPANIB [Suspect]
     Active Substance: PAZOPANIB
     Indication: LEIOMYOSARCOMA
     Dosage: 800 MG, QD
     Route: 065

REACTIONS (12)
  - Cardiac failure congestive [Fatal]
  - Heart rate increased [Fatal]
  - Hypotension [Fatal]
  - Hepatic enzyme increased [Unknown]
  - Drug level increased [Unknown]
  - Diarrhoea [Unknown]
  - Palmar-plantar erythrodysaesthesia syndrome [Unknown]
  - Sinus tachycardia [Fatal]
  - Dyspnoea [Fatal]
  - Decreased appetite [Unknown]
  - Fatigue [Fatal]
  - Stomatitis [Unknown]
